FAERS Safety Report 9052356 (Version 1)
Quarter: 2013Q1

REPORT INFORMATION
  Report Type: Spontaneous
  Country: CA (occurrence: CA)
  Receive Date: 20130207
  Receipt Date: 20130207
  Transmission Date: 20140127
  Serious: Yes (Hospitalization)
  Sender: FDA-Public Use
  Company Number: CA-MYLANLABS-2013S1001834

PATIENT
  Age: 54 Year
  Sex: Female

DRUGS (5)
  1. CLOZAPINE [Suspect]
     Dosage: 337.5 MG/DAY
     Route: 065
  2. LITHIUM [Concomitant]
     Dosage: 450 MG/DAY
     Route: 065
  3. OXYBUTYNIN [Concomitant]
     Dosage: 10 MG/DAY
     Route: 065
  4. VALPROIC ACID [Concomitant]
     Dosage: 1000 MG/DAY
     Route: 065
  5. TIOTROPIUM BROMIDE [Concomitant]
     Dosage: 18 MC/DAY
     Route: 055

REACTIONS (2)
  - Colonic pseudo-obstruction [Recovering/Resolving]
  - Antipsychotic drug level increased [Unknown]
